FAERS Safety Report 11271923 (Version 1)
Quarter: 2015Q3

REPORT INFORMATION
  Report Type: Spontaneous
  Country: IT (occurrence: IT)
  Receive Date: 20150715
  Receipt Date: 20150715
  Transmission Date: 20151125
  Serious: Yes (Other)
  Sender: FDA-Public Use
  Company Number: IT-ALVOGEN-2015AL002766

PATIENT
  Age: 48 Year
  Sex: Male

DRUGS (2)
  1. MICARDISPLUS [Suspect]
     Active Substance: HYDROCHLOROTHIAZIDE\TELMISARTAN
     Indication: HYPERTENSION
     Route: 048
     Dates: start: 20140720
  2. ATENOLOL. [Suspect]
     Active Substance: ATENOLOL
     Indication: HYPERTENSION
     Route: 048
     Dates: start: 20140720

REACTIONS (3)
  - Headache [Unknown]
  - Drug ineffective [Unknown]
  - Hypertension [Unknown]

NARRATIVE: CASE EVENT DATE: 20140723
